FAERS Safety Report 25263354 (Version 2)
Quarter: 2025Q2

REPORT INFORMATION
  Report Type: Spontaneous
  Country: DE (occurrence: DE)
  Receive Date: 20250502
  Receipt Date: 20250506
  Transmission Date: 20250716
  Serious: Yes (Hospitalization)
  Sender: CATALYST PHARMA
  Company Number: DE-CATALYSTPHARMACEUTICALPARTNERS-DE-CATA-25-00636

PATIENT
  Age: 10 Year
  Sex: Male

DRUGS (3)
  1. FYCOMPA [Suspect]
     Active Substance: PERAMPANEL
     Indication: Epilepsy
     Dosage: 4.0 MILLIGRAM(S) (4 MILLIGRAM(S), 1 IN 1 DAY)
     Route: 048
     Dates: end: 20250423
  2. FYCOMPA [Suspect]
     Active Substance: PERAMPANEL
     Dosage: 8.0 MILLIGRAM(S) (8 MILLIGRAM(S), 1 IN 1 DAY)
     Route: 048
     Dates: start: 20250424, end: 20250424
  3. FYCOMPA [Suspect]
     Active Substance: PERAMPANEL
     Dosage: 4.0 MILLIGRAM(S) (4 MILLIGRAM(S), 1 IN 1 DAY)
     Route: 048
     Dates: start: 20250425

REACTIONS (4)
  - Apathy [Recovered/Resolved]
  - Supraventricular extrasystoles [Recovered/Resolved]
  - Vomiting [Recovered/Resolved]
  - Extra dose administered [Unknown]

NARRATIVE: CASE EVENT DATE: 20250424
